FAERS Safety Report 11242845 (Version 1)
Quarter: 2015Q3

REPORT INFORMATION
  Report Type: Spontaneous
  Country: US (occurrence: US)
  Receive Date: 20150707
  Receipt Date: 20150707
  Transmission Date: 20151125
  Serious: No
  Sender: FDA-Public Use
  Company Number: US-AMGEN-USASP2015065692

PATIENT
  Age: 46 Year
  Sex: Female

DRUGS (1)
  1. ENBREL [Suspect]
     Active Substance: ETANERCEPT
     Indication: RHEUMATOID ARTHRITIS
     Dosage: 25 MG, EVERY THREE DAYS
     Route: 065
     Dates: start: 20140821, end: 20150624

REACTIONS (2)
  - Pruritus [Unknown]
  - Arthropod sting [Unknown]

NARRATIVE: CASE EVENT DATE: 20150628
